FAERS Safety Report 7346212-9 (Version None)
Quarter: 2011Q1

REPORT INFORMATION
  Report Type: 
  Country: None (occurrence: None)
  Receive Date: 20110301
  Receipt Date: 20110210
  Transmission Date: 20110831
  Serious: Yes (Death, Life-Threatening, Other)
  Sender: FDA-Public Use
  Company Number: 2010US004460

PATIENT
  Age: 6 Year
  Sex: Male

DRUGS (9)
  1. AMBISOME [Suspect]
     Indication: FUNGAEMIA
     Dosage: 60 MG, UID/QD, IV DRIP
     Route: 041
     Dates: start: 20101006, end: 20101018
  2. CEFAZOLIN SODIUM [Concomitant]
  3. PRODIF (FOSFLUCONAZOLE) [Concomitant]
  4. OMEPRAZOLE [Concomitant]
  5. FUNGUARD (MICAFUNGIN) INJECTION [Suspect]
     Indication: FUNGAEMIA
     Dosage: 75 MG, UID/QD, IV DRIP
     Route: 041
     Dates: start: 20100930, end: 20101018
  6. RIVOTRIL (CLONAZEPAM) [Concomitant]
  7. MAALOX (ALUMINIUM HYDROXIDE GEL) [Concomitant]
  8. WAKOBITAL (PHENOBARBITAL SODIUM) [Concomitant]
  9. COTRIM [Concomitant]

REACTIONS (6)
  - CAPILLARY PERMEABILITY INCREASED [None]
  - HYPOALBUMINAEMIA [None]
  - SHOCK [None]
  - DRUG INEFFECTIVE [None]
  - RENAL FAILURE [None]
  - DISSEMINATED INTRAVASCULAR COAGULATION [None]
